FAERS Safety Report 15919109 (Version 2)
Quarter: 2019Q1

REPORT INFORMATION
  Report Type: Spontaneous
  Country: DE (occurrence: DE)
  Receive Date: 20190205
  Receipt Date: 20190314
  Transmission Date: 20190417
  Serious: Yes (Congenital Anomaly, Other)
  Sender: FDA-Public Use
  Company Number: DE-MYLANLABS-2019M1008884

PATIENT
  Sex: Male
  Weight: 2.9 kg

DRUGS (4)
  1. SULFASALAZINE. [Suspect]
     Active Substance: SULFASALAZINE
     Indication: RHEUMATOID ARTHRITIS
     Dosage: GESTATIONAL WEEK OF EXPOSURE- 0-17
     Route: 064
  2. DICLOFENAC [Suspect]
     Active Substance: DICLOFENAC
     Indication: RHEUMATOID ARTHRITIS
     Dosage: 100 MILLIGRAM, PRN GESTSTIONAL WEEK OF EXPOSURE 0-19 + 4
     Route: 064
  3. HYDROXYCHLOROQUINE [Suspect]
     Active Substance: HYDROXYCHLOROQUINE
     Indication: RHEUMATOID ARTHRITIS
     Dosage: GESTATIONAL WEEK OF EXPOSURE- 0-13
     Route: 064
  4. PARACETAMOL [Suspect]
     Active Substance: ACETAMINOPHEN
     Indication: RHEUMATOID ARTHRITIS
     Dosage: GESTATIONAL WEEK OF EXPOSURE- 17-21
     Route: 064

REACTIONS (6)
  - Trisomy 8 [Unknown]
  - Fragile X syndrome [Unknown]
  - Microcephaly [Unknown]
  - Medium-chain acyl-coenzyme A dehydrogenase deficiency [Unknown]
  - Cryopyrin associated periodic syndrome [Unknown]
  - Foetal exposure during pregnancy [Recovered/Resolved]
